FAERS Safety Report 9207722 (Version 1)
Quarter: 2013Q2

REPORT INFORMATION
  Report Type: Other
  Country: US (occurrence: US)
  Receive Date: 20130403
  Receipt Date: 20130403
  Transmission Date: 20140414
  Serious: Yes (Life-Threatening)
  Sender: FDA-Public Use
  Company Number: US-BRISTOL-MYERS SQUIBB COMPANY-18713701

PATIENT
  Age: 60 Year
  Sex: Male

DRUGS (3)
  1. TRAZODONE HCL [Suspect]
     Indication: DEPRESSION
     Dosage: AT BEDTIME
  2. METHYLENE BLUE [Suspect]
     Indication: VASOPLEGIA SYNDROME
     Dosage: 0.5MG/KG/HRS
  3. ESCITALOPRAM [Suspect]
     Indication: DEPRESSION
     Route: 048

REACTIONS (1)
  - Serotonin syndrome [Recovered/Resolved]
